FAERS Safety Report 8301419-9 (Version None)
Quarter: 2012Q2

REPORT INFORMATION
  Report Type: 
  Country: None (occurrence: None)
  Receive Date: 20120418
  Receipt Date: 20120418
  Transmission Date: 20120825
  Serious: Yes (Hospitalization)
  Sender: FDA-Public Use
  Company Number: None

PATIENT
  Age: 63 Year
  Sex: Female
  Weight: 70.2 kg

DRUGS (8)
  1. CHEMOTHERAPEUTIC AGENT (CHEMOTHERAPEUTICS) [Concomitant]
  2. MULTIVITAMIN [Concomitant]
  3. ZANTAC [Concomitant]
  4. STOOL SOFTNER (DOCUSATE SODIUM) [Concomitant]
  5. AFINITOR [Suspect]
     Indication: RENAL CELL CARCINOMA
     Dosage: 10 MG (10 MG, 1 IN 1 D), PER ORAL
     Route: 048
     Dates: start: 20120228
  6. CALCIUM CARBONATE [Concomitant]
  7. IRON SUPPLEMENT (IRON) [Concomitant]
  8. PRILOSEC [Concomitant]

REACTIONS (3)
  - DYSPNOEA [None]
  - HAEMORRHAGIC STROKE [None]
  - METASTASES TO CENTRAL NERVOUS SYSTEM [None]
